FAERS Safety Report 9453161 (Version 1)
Quarter: 2013Q3

REPORT INFORMATION
  Report Type: Spontaneous
  Country: GB (occurrence: GB)
  Receive Date: 20130812
  Receipt Date: 20130812
  Transmission Date: 20140515
  Serious: Yes (Other)
  Sender: FDA-Public Use
  Company Number: GB-NOVOPROD-384351

PATIENT
  Sex: Female
  Weight: 29.2 kg

DRUGS (1)
  1. NOVORAPID [Suspect]
     Indication: TYPE 1 DIABETES MELLITUS
     Dosage: 20 IU, QD
     Route: 065
     Dates: start: 20080815

REACTIONS (2)
  - Deformity [Not Recovered/Not Resolved]
  - Lipoatrophy [Not Recovered/Not Resolved]
